FAERS Safety Report 14008772 (Version 1)
Quarter: 2017Q3

REPORT INFORMATION
  Report Type: Spontaneous
  Country: IN (occurrence: IN)
  Receive Date: 20170925
  Receipt Date: 20170925
  Transmission Date: 20171128
  Serious: Yes (Hospitalization, Congenital Anomaly, Other)
  Sender: FDA-Public Use
  Company Number: IN-CELGENEUS-IND-20170903412

PATIENT
  Age: 26 Year
  Sex: Male

DRUGS (16)
  1. RIFAMPICIN [Concomitant]
     Active Substance: RIFAMPIN
     Indication: HISTIOCYTOSIS HAEMATOPHAGIC
  2. DAPSONE. [Concomitant]
     Active Substance: DAPSONE
     Indication: LEPROSY
     Route: 065
  3. CLOFAZIMINE [Concomitant]
     Active Substance: CLOFAZIMINE
     Indication: LEPROSY
     Route: 065
  4. RIFAMPICIN [Concomitant]
     Active Substance: RIFAMPIN
     Indication: TYPE 2 LEPRA REACTION
     Dosage: 20 MILLIGRAM
     Route: 065
  5. CLOFAZIMINE [Concomitant]
     Active Substance: CLOFAZIMINE
     Indication: TYPE 2 LEPRA REACTION
  6. CEFOPERAZONE [Concomitant]
     Active Substance: CEFOPERAZONE
     Indication: BACTERIAL INFECTION
     Route: 065
  7. VORICONAZOLE. [Concomitant]
     Active Substance: VORICONAZOLE
     Indication: BACTERIAL INFECTION
     Route: 065
  8. DAPSONE. [Concomitant]
     Active Substance: DAPSONE
     Indication: TYPE 2 LEPRA REACTION
     Dosage: 100 MILLIGRAM
     Route: 065
  9. LEVOFLOXACIN. [Concomitant]
     Active Substance: LEVOFLOXACIN
     Indication: FUNGAL INFECTION
  10. CEFOPERAZONE [Concomitant]
     Active Substance: CEFOPERAZONE
     Indication: FUNGAL INFECTION
  11. VORICONAZOLE. [Concomitant]
     Active Substance: VORICONAZOLE
     Indication: FUNGAL INFECTION
  12. THALIDOMIDE [Suspect]
     Active Substance: THALIDOMIDE
     Indication: TYPE 2 LEPRA REACTION
     Dosage: 100 MILLIGRAM
     Route: 065
  13. PREDNISOLONE. [Concomitant]
     Active Substance: PREDNISOLONE
     Indication: TYPE 2 LEPRA REACTION
     Route: 065
  14. DAPSONE. [Concomitant]
     Active Substance: DAPSONE
     Indication: HISTIOCYTOSIS HAEMATOPHAGIC
  15. LEVOFLOXACIN. [Concomitant]
     Active Substance: LEVOFLOXACIN
     Indication: BACTERIAL INFECTION
     Route: 065
  16. RIFAMPICIN [Concomitant]
     Active Substance: RIFAMPIN
     Indication: LEPROSY
     Route: 065

REACTIONS (6)
  - Myocardial infarction [Recovered/Resolved]
  - Sinus bradycardia [Recovered/Resolved]
  - Pulmonary mass [Recovered/Resolved]
  - Ventricular tachycardia [Recovered/Resolved]
  - Histiocytosis haematophagic [Recovered/Resolved]
  - Type 2 lepra reaction [Recovered/Resolved]

NARRATIVE: CASE EVENT DATE: 201604
